FAERS Safety Report 10683815 (Version 1)
Quarter: 2014Q4

REPORT INFORMATION
  Report Type: Spontaneous
  Country: IT (occurrence: IT)
  Receive Date: 20141230
  Receipt Date: 20141230
  Transmission Date: 20150529
  Serious: Yes (Other)
  Sender: FDA-Public Use
  Company Number: IT-BAYER-2014-190462

PATIENT
  Age: 55 Year
  Sex: Male

DRUGS (1)
  1. KETOPROFEN (TOPICAL) [Suspect]
     Active Substance: KETOPROFEN
     Dosage: UNK
     Route: 061
     Dates: start: 20140414, end: 20140414

REACTIONS (3)
  - Erythema [Recovering/Resolving]
  - Dysphagia [Recovering/Resolving]
  - Pruritus generalised [Recovering/Resolving]

NARRATIVE: CASE EVENT DATE: 20140414
